FAERS Safety Report 6614258-1 (Version None)
Quarter: 2010Q1

REPORT INFORMATION
  Report Type: 
  Country: None (occurrence: None)
  Receive Date: 20100303
  Receipt Date: 20100303
  Transmission Date: 20100710
  Serious: Yes (Life-Threatening)
  Sender: FDA-Public Use
  Company Number: None

PATIENT
  Age: 48 Year
  Sex: Female
  Weight: 81.6475 kg

DRUGS (1)
  1. AMBIEN [Suspect]
     Indication: INSOMNIA
     Dosage: ONCE AT BEDTIME PO
     Route: 048
     Dates: start: 20070101, end: 20090101

REACTIONS (6)
  - BINGE EATING [None]
  - CONTUSION [None]
  - MULTIPLE INJURIES [None]
  - SLEEP-RELATED EATING DISORDER [None]
  - SOMNAMBULISM [None]
  - WEIGHT INCREASED [None]
